FAERS Safety Report 5953058-2 (Version None)
Quarter: 2008Q4

REPORT INFORMATION
  Report Type: 
  Country: None (occurrence: None)
  Receive Date: 20081114
  Receipt Date: 20081009
  Transmission Date: 20090506
  Serious: No
  Sender: FDA-Public Use
  Company Number: US-BRISTOL-MYERS SQUIBB COMPANY-14364509

PATIENT

DRUGS (2)
  1. IXEMPRA KIT [Suspect]
     Dates: start: 20081004
  2. CARBOPLATIN [Suspect]
     Dates: start: 20081004

REACTIONS (1)
  - INJECTION SITE EXTRAVASATION [None]
